FAERS Safety Report 8326138-4 (Version None)
Quarter: 2012Q2

REPORT INFORMATION
  Report Type: 
  Country: None (occurrence: None)
  Receive Date: 20120501
  Receipt Date: 20100614
  Transmission Date: 20120825
  Serious: No
  Sender: FDA-Public Use
  Company Number: US-TEVA-2010003227

PATIENT
  Sex: Male
  Weight: 93.978 kg

DRUGS (9)
  1. POTASSIUM CHLORIDE [Concomitant]
     Indication: HYPOKALAEMIA
  2. NUVIGIL [Suspect]
     Indication: SOMNOLENCE
     Dosage: 150 MILLIGRAM;
     Route: 048
     Dates: start: 20090901
  3. LIPITOR [Concomitant]
     Indication: HYPERCHOLESTEROLAEMIA
  4. HYDROCHLOROTHIAZIDE [Concomitant]
     Indication: HYPERTENSION
  5. PREDNISONE [Suspect]
     Dates: start: 20100607, end: 20100614
  6. CARDIZEM [Concomitant]
     Indication: ARRHYTHMIA
     Dates: start: 20060101
  7. WARFARIN SODIUM [Concomitant]
     Indication: ANTICOAGULANT THERAPY
  8. DIGOXIN [Concomitant]
     Indication: HYPERTENSION
  9. ASPIRIN [Concomitant]
     Indication: PROPHYLAXIS

REACTIONS (2)
  - DRY MOUTH [None]
  - DYSPHONIA [None]
